FAERS Safety Report 8107606-7 (Version None)
Quarter: 2012Q1

REPORT INFORMATION
  Report Type: 
  Country: None (occurrence: None)
  Receive Date: 20120202
  Receipt Date: 20120127
  Transmission Date: 20120608
  Serious: No
  Sender: FDA-Public Use
  Company Number: US-PFIZER INC-2012023841

PATIENT
  Sex: Male
  Weight: 70.295 kg

DRUGS (1)
  1. BENEFIX [Suspect]
     Indication: FACTOR IX DEFICIENCY
     Dosage: 1000 IU DAILY FROM MONDAY TO FRIDAY
     Dates: start: 20090101

REACTIONS (2)
  - VOMITING [None]
  - VIRAL INFECTION [None]
